FAERS Safety Report 7374755-0 (Version None)
Quarter: 2011Q1

REPORT INFORMATION
  Report Type: 
  Country: None (occurrence: None)
  Receive Date: 20110308
  Receipt Date: 20101221
  Transmission Date: 20110831
  Serious: Yes (Other)
  Sender: FDA-Public Use
  Company Number: 11-001

PATIENT
  Age: 59 Year
  Sex: Female

DRUGS (2)
  1. SYNTHROID [Concomitant]
  2. HOUSE DUST [Suspect]
     Indication: THERAPEUTIC PRODUCT INEFFECTIVE

REACTIONS (2)
  - NO THERAPEUTIC RESPONSE [None]
  - LOCAL REACTION [None]
